FAERS Safety Report 9357274 (Version 1)
Quarter: 2013Q2

REPORT INFORMATION
  Report Type: Spontaneous
  Country: DE (occurrence: DE)
  Receive Date: 20130620
  Receipt Date: 20130620
  Transmission Date: 20140414
  Serious: Yes (Life-Threatening, Hospitalization, Congenital Anomaly)
  Sender: FDA-Public Use
  Company Number: DE-JNJFOC-20130601905

PATIENT
  Sex: Male
  Weight: 1.92 kg

DRUGS (2)
  1. LOPERAMIDE [Suspect]
     Indication: GASTROENTERITIS
     Dosage: MOTHER^S DOSING
     Route: 064
     Dates: start: 20070905, end: 20070913
  2. METOCLOPRAMIDE [Suspect]
     Indication: GASTROENTERITIS
     Dosage: MOTHER^S DOSING
     Route: 064
     Dates: start: 20070905, end: 20070913

REACTIONS (8)
  - Urethral valves [Recovered/Resolved with Sequelae]
  - Hypertension [Unknown]
  - Premature baby [Not Recovered/Not Resolved]
  - Congenital megaureter [Unknown]
  - Vesicoureteric reflux [Unknown]
  - Renal failure chronic [Unknown]
  - Renal dysplasia [Unknown]
  - Foetal exposure during pregnancy [Recovered/Resolved]
